FAERS Safety Report 19896738 (Version 1)
Quarter: 2021Q3

REPORT INFORMATION
  Report Type: Spontaneous
  Country: CN (occurrence: CN)
  Receive Date: 20210930
  Receipt Date: 20210930
  Transmission Date: 20211014
  Serious: Yes (Other)
  Sender: FDA-Public Use
  Company Number: CN-SUN PHARMACEUTICAL INDUSTRIES LTD-2021R1-312541

PATIENT
  Age: 50 Year
  Sex: Female

DRUGS (8)
  1. TRASTUZUMAB. [Suspect]
     Active Substance: TRASTUZUMAB
     Indication: SMALL INTESTINE CARCINOMA
  2. CAPECITABINE. [Concomitant]
     Active Substance: CAPECITABINE
     Indication: SMALL INTESTINE CARCINOMA
  3. CAPECITABINE. [Suspect]
     Active Substance: CAPECITABINE
     Indication: METASTASES TO LUNG
  4. OXALIPLATIN. [Concomitant]
     Active Substance: OXALIPLATIN
     Indication: METASTASES TO LUNG
     Dosage: 200 MILLIGRAM, QD
     Route: 065
  5. CAPECITABINE. [Suspect]
     Active Substance: CAPECITABINE
     Indication: SMALL INTESTINE CARCINOMA
     Dosage: UNK
     Route: 065
     Dates: start: 2020
  6. TRASTUZUMAB. [Suspect]
     Active Substance: TRASTUZUMAB
     Indication: METASTASES TO LUNG
     Dosage: UNK
     Route: 065
     Dates: start: 2020
  7. OXALIPLATIN. [Concomitant]
     Active Substance: OXALIPLATIN
     Indication: SMALL INTESTINE CARCINOMA
  8. CAPECITABINE. [Concomitant]
     Active Substance: CAPECITABINE
     Indication: METASTASES TO LUNG
     Dosage: UNK (1.5 PO BID D1?14)
     Route: 048
     Dates: start: 202004

REACTIONS (1)
  - Disease progression [Unknown]

NARRATIVE: CASE EVENT DATE: 202010
